FAERS Safety Report 11570579 (Version 2)
Quarter: 2015Q4

REPORT INFORMATION
  Report Type: Spontaneous
  Country: US (occurrence: US)
  Receive Date: 20150916
  Receipt Date: 20151027
  Transmission Date: 20160304
  Serious: No
  Sender: FDA-Public Use
  Company Number: US-ELI_LILLY_AND_COMPANY-US200909001762

PATIENT
  Age: 77 Year
  Sex: Female

DRUGS (2)
  1. FORTEO [Suspect]
     Active Substance: TERIPARATIDE
     Dosage: UNK, DAILY (1/D)
     Dates: end: 201009
  2. FORTEO [Suspect]
     Active Substance: TERIPARATIDE
     Indication: OSTEOPOROSIS
     Dosage: UNK, DAILY (1/D)
     Dates: start: 200809, end: 200903

REACTIONS (6)
  - Heart rate increased [Recovered/Resolved]
  - Malaise [Recovered/Resolved]
  - Feeling abnormal [Recovered/Resolved]
  - Drug ineffective [Unknown]
  - Diverticulitis [Unknown]
  - Blood calcium increased [Recovered/Resolved]
